FAERS Safety Report 7428935 (Version 5)
Quarter: 2012Q4

REPORT INFORMATION
  Report Type: 
  Country: CA (occurrence: CA)
  Receive Date: 20100623
  Receipt Date: 20121127
  Transmission Date: 20130627
  Serious: Yes (Other)
  Sender: FDA-Public Use
  Company Number: PHHY2010CA39452

PATIENT
  Sex: Female

DRUGS (3)
  1. SANDOSTATIN LAR [Suspect]
     Indication: ACROMEGALY
     Dosage: 20 mg, Every 4 weeks
     Route: 030
     Dates: start: 20051129
  2. SANDOSTATIN LAR [Suspect]
     Dosage: 30 mg, every 4 weeks
     Route: 030
  3. SANDOSTATIN LAR [Suspect]
     Dosage: 20 mg, Every 4 weeks
     Route: 030

REACTIONS (7)
  - Loss of consciousness [Unknown]
  - Paraesthesia [Unknown]
  - Diarrhoea [Unknown]
  - Hyperhidrosis [Unknown]
  - Discomfort [Unknown]
  - Abdominal distension [Unknown]
  - Blood pressure systolic increased [Unknown]
